FAERS Safety Report 12377524 (Version 1)
Quarter: 2016Q2

REPORT INFORMATION
  Report Type: Spontaneous
  Country: US (occurrence: US)
  Receive Date: 20160517
  Receipt Date: 20160517
  Transmission Date: 20160815
  Serious: No
  Sender: FDA-Public Use
  Company Number: US-JNJFOC-20150603778

PATIENT
  Sex: Male

DRUGS (2)
  1. AMOX [Concomitant]
     Active Substance: UNSPECIFIED INGREDIENT
     Route: 065
  2. IMBRUVICA [Suspect]
     Active Substance: IBRUTINIB
     Indication: CHRONIC LYMPHOCYTIC LEUKAEMIA
     Dosage: EXPDT=01-JUL-2015
     Route: 048
     Dates: start: 20150127

REACTIONS (6)
  - Pain [Unknown]
  - Herpes zoster [Unknown]
  - Myalgia [Unknown]
  - Joint swelling [Recovered/Resolved]
  - Muscle spasms [Unknown]
  - Arthralgia [Not Recovered/Not Resolved]

NARRATIVE: CASE EVENT DATE: 2015
